FAERS Safety Report 20350253 (Version 1)
Quarter: 2022Q1

REPORT INFORMATION
  Report Type: Spontaneous
  Country: US (occurrence: None)
  Receive Date: 20220119
  Receipt Date: 20220119
  Transmission Date: 20220423
  Serious: Yes (Other)
  Sender: FDA-Public Use
  Company Number: None

PATIENT
  Age: 87 Year
  Sex: Male
  Weight: 139 kg

DRUGS (1)
  1. VANCOMYCIN [Suspect]
     Active Substance: VANCOMYCIN
     Indication: Meningitis
     Dosage: OTHER STRENGTH : 1.5GM/VIL;?
     Dates: start: 20211009, end: 20211011

REACTIONS (8)
  - Chest pain [None]
  - Electrocardiogram T wave inversion [None]
  - Infusion related reaction [None]
  - Troponin increased [None]
  - Vascular dissection [None]
  - Pulmonary embolism [None]
  - Pericardial effusion [None]
  - Myocarditis [None]

NARRATIVE: CASE EVENT DATE: 20211010
